FAERS Safety Report 6024760-1 (Version None)
Quarter: 2008Q4

REPORT INFORMATION
  Report Type: 
  Country: None (occurrence: None)
  Receive Date: 20081231
  Receipt Date: 20081223
  Transmission Date: 20090506
  Serious: Yes (Other)
  Sender: FDA-Public Use
  Company Number: US-BIOGENIDEC-2008BI034690

PATIENT
  Age: 39 Year
  Sex: Female
  Weight: 72 kg

DRUGS (9)
  1. AVONEX [Suspect]
     Indication: MULTIPLE SCLEROSIS
     Route: 030
     Dates: start: 20060101, end: 20060101
  2. ACETAMINOPHEN [Concomitant]
     Indication: PREMEDICATION
  3. ASPIRIN [Concomitant]
     Indication: PREMEDICATION
  4. LIPITOR [Concomitant]
     Indication: DIABETES MELLITUS
  5. BUPROPION HCL [Concomitant]
     Indication: DEPRESSION
     Dates: start: 20060101
  6. PROVIGIL [Concomitant]
     Indication: FATIGUE
  7. LYRICA [Concomitant]
     Indication: MUSCLE SPASMS
  8. OXYBUTYNIN CHLORIDE [Concomitant]
     Indication: BLADDER SPASM
  9. BENADRYL [Concomitant]
     Indication: PREMEDICATION

REACTIONS (1)
  - ANAPHYLACTIC SHOCK [None]
